FAERS Safety Report 4978636-9 (Version None)
Quarter: 2006Q2

REPORT INFORMATION
  Report Type: 
  Country: None (occurrence: None)
  Receive Date: 20060420
  Receipt Date: 20060327
  Transmission Date: 20061013
  Serious: Yes (Hospitalization)
  Sender: FDA-Public Use
  Company Number: JP-MERCK-0603USA04466

PATIENT
  Age: 33 Year
  Sex: Female

DRUGS (7)
  1. PRIMAXIN [Suspect]
     Indication: INFECTION
     Route: 042
     Dates: start: 20060306, end: 20060318
  2. VANCOMYCIN [Concomitant]
     Indication: INFECTION
     Route: 065
     Dates: start: 20060301, end: 20060317
  3. NEUQUINON [Concomitant]
     Indication: CARDIAC FAILURE
     Route: 048
     Dates: start: 20060213, end: 20060319
  4. CYANOCOBALAMIN [Concomitant]
     Indication: NEUROPATHY PERIPHERAL
     Route: 065
     Dates: start: 20060213, end: 20060319
  5. NORLUTEN [Concomitant]
     Indication: MENSTRUAL DISORDER
     Route: 048
     Dates: start: 20060213, end: 20060319
  6. PEPCID [Concomitant]
     Indication: PROPHYLAXIS
     Route: 048
     Dates: start: 20060213, end: 20060319
  7. [THERAPY UNSPECIFIED] [Concomitant]
     Indication: PROPHYLAXIS
     Route: 048
     Dates: start: 20060213, end: 20060319

REACTIONS (1)
  - TOXIC SKIN ERUPTION [None]
